FAERS Safety Report 9495909 (Version 1)
Quarter: 2013Q3

REPORT INFORMATION
  Report Type: Spontaneous
  Country: US (occurrence: US)
  Receive Date: 20130903
  Receipt Date: 20130903
  Transmission Date: 20140515
  Serious: Yes (Other)
  Sender: FDA-Public Use
  Company Number: US-RB-057854-13

PATIENT
  Age: 0 None
  Sex: Female

DRUGS (5)
  1. SUBOXONE FILM [Suspect]
     Indication: DRUG DEPENDENCE
     Dosage: SUBOXONE FILM
     Route: 064
     Dates: start: 201105, end: 201106
  2. BUPRENORPHINE GENERIC [Suspect]
     Route: 064
     Dates: start: 201106, end: 20111025
  3. BUPRENORPHINE GENERIC [Suspect]
     Indication: DRUG DEPENDENCE
     Route: 063
     Dates: start: 2011, end: 2013
  4. NICOTINE [Suspect]
     Indication: NICOTINE DEPENDENCE
     Dosage: DOSING: 10 CIGARETTES DAILY
     Route: 064
     Dates: start: 201105, end: 20111025
  5. NICOTINE [Suspect]
     Dosage: DOSING: 10 CIGARETTES DAILY
     Route: 063
     Dates: start: 2011, end: 2013

REACTIONS (7)
  - Foetal exposure during pregnancy [Recovered/Resolved]
  - Premature baby [Recovered/Resolved]
  - Low birth weight baby [Recovered/Resolved]
  - Pneumothorax [Recovered/Resolved]
  - Anaemia neonatal [Recovered/Resolved]
  - Sepsis neonatal [Recovered/Resolved]
  - Exposure during breast feeding [Recovered/Resolved]
